FAERS Safety Report 5492867-3 (Version None)
Quarter: 2007Q4

REPORT INFORMATION
  Report Type: 
  Country: None (occurrence: None)
  Receive Date: 20071023
  Receipt Date: 20070712
  Transmission Date: 20080405
  Serious: No
  Sender: FDA-Public Use
  Company Number: US-BRISTOL-MYERS SQUIBB COMPANY-13843966

PATIENT
  Sex: Male
  Weight: 84 kg

DRUGS (6)
  1. BUSPAR [Suspect]
     Route: 048
  2. SYNTHROID [Concomitant]
  3. ULTRAM [Concomitant]
  4. CRESTOR [Concomitant]
  5. NEXIUM [Concomitant]
  6. ACCUPRIL [Concomitant]

REACTIONS (2)
  - ANXIETY [None]
  - BLOOD PRESSURE INCREASED [None]
